FAERS Safety Report 10483165 (Version 3)
Quarter: 2016Q2

REPORT INFORMATION
  Report Type: Report from Study
  Country: US (occurrence: US)
  Receive Date: 20140930
  Receipt Date: 20160616
  Transmission Date: 20160815
  Serious: Yes (Other)
  Sender: FDA-Public Use
  Company Number: US-ROCHE-GNE301188

PATIENT
  Age: 12 Year
  Sex: Male
  Weight: 62.6 kg

DRUGS (9)
  1. CLONIDINE. [Concomitant]
     Active Substance: CLONIDINE
     Route: 048
  2. NUTROPIN AQ [Suspect]
     Active Substance: SOMATROPIN
     Route: 058
  3. NUTROPIN AQ [Suspect]
     Active Substance: SOMATROPIN
     Route: 058
  4. ARIMIDEX [Concomitant]
     Active Substance: ANASTROZOLE
     Route: 048
  5. GLUCOPHAGE [Concomitant]
     Active Substance: METFORMIN HYDROCHLORIDE
     Route: 048
  6. NUTROPIN AQ [Suspect]
     Active Substance: SOMATROPIN
     Route: 058
  7. NORDITROPIN [Concomitant]
     Active Substance: SOMATROPIN
  8. ARGININE [Concomitant]
     Active Substance: ARGININE
     Route: 065
  9. NUTROPIN AQ [Suspect]
     Active Substance: SOMATROPIN
     Indication: GROWTH HORMONE DEFICIENCY
     Dosage: 1.4 MG, QD
     Route: 058
     Dates: start: 200609, end: 20100421

REACTIONS (6)
  - Osteochondrosis [Recovered/Resolved]
  - Weight increased [Unknown]
  - Growth retardation [Unknown]
  - Periarthritis [Unknown]
  - Scar [Unknown]
  - Blood glucose increased [Unknown]

NARRATIVE: CASE EVENT DATE: 201004
